FAERS Safety Report 4365286-0 (Version None)
Quarter: 2004Q2

REPORT INFORMATION
  Report Type: 
  Country: None (occurrence: None)
  Receive Date: 20040525
  Receipt Date: 20040226
  Transmission Date: 20050107
  Serious: No
  Sender: FDA-Public Use
  Company Number: PHEH2004US01268

PATIENT
  Age: 50 Year
  Sex: Female

DRUGS (4)
  1. ZELNORM [Suspect]
     Indication: IRRITABLE BOWEL SYNDROME
     Dosage: 6 MG, BID, ORAL
     Route: 048
     Dates: start: 20040127, end: 20040128
  2. VISKEN [Concomitant]
  3. PANLOR DC (DIHYDROCODEINE BITARTRATE) [Concomitant]
  4. CLIMARA ^BERLEX^ [Concomitant]

REACTIONS (5)
  - ABDOMINAL DISTENSION [None]
  - BLOOD BLISTER [None]
  - DIARRHOEA [None]
  - PRURITUS [None]
  - RASH [None]
